FAERS Safety Report 6417199-8 (Version None)
Quarter: 2009Q4

REPORT INFORMATION
  Report Type: 
  Country: None (occurrence: None)
  Receive Date: 20091028
  Receipt Date: 20091022
  Transmission Date: 20100525
  Serious: Yes (Hospitalization)
  Sender: FDA-Public Use
  Company Number: FR-B.I. PHARMACEUTICALS,INC./RIDGEFIELD-2009-FF-00721FF

PATIENT
  Sex: Female

DRUGS (8)
  1. MICARDIS [Suspect]
     Indication: HYPERTENSION
     Dosage: 20 MG
     Route: 048
     Dates: start: 20090704
  2. LASILIX [Concomitant]
     Dosage: 40 MG
     Route: 048
  3. STILNOX [Concomitant]
     Dosage: 10 MG
     Route: 048
     Dates: start: 20090718
  4. SINGULAIR [Concomitant]
     Dosage: 10 MG
     Route: 048
  5. CORDARONE [Concomitant]
     Dosage: 200 MG
     Route: 048
     Dates: start: 20090709
  6. PREVISCAN [Concomitant]
     Dosage: 20 MG
     Route: 048
     Dates: start: 20090702
  7. KARDEGIC [Concomitant]
     Dosage: 75 MG
     Route: 048
  8. KALEORID [Concomitant]
     Dosage: 2000 MG
     Route: 048

REACTIONS (1)
  - FALL [None]
